FAERS Safety Report 13033818 (Version 1)
Quarter: 2016Q4

REPORT INFORMATION
  Report Type: Spontaneous
  Country: US (occurrence: US)
  Receive Date: 20161216
  Receipt Date: 20161216
  Transmission Date: 20170207
  Serious: Yes (Other)
  Sender: FDA-Public Use
  Company Number: US-FRESENIUS MEDICAL CARE RENAL THERAPIES GROUP-FMC-1611-001412

PATIENT
  Age: 65 Year
  Sex: Male
  Weight: 119 kg

DRUGS (1)
  1. DELFLEX [Suspect]
     Active Substance: CALCIUM CHLORIDE\DEXTROSE\MAGNESIUM CHLORIDE\SODIUM CHLORIDE\SODIUM LACTATE
     Indication: END STAGE RENAL DISEASE
     Dosage: 2.5%
     Route: 033
     Dates: start: 20151207

REACTIONS (3)
  - Peritonitis [Recovered/Resolved]
  - Culture positive [None]
  - Inadequate aseptic technique in use of product [None]

NARRATIVE: CASE EVENT DATE: 20161015
